FAERS Safety Report 18222078 (Version 1)
Quarter: 2020Q3

REPORT INFORMATION
  Report Type: Spontaneous
  Country: US (occurrence: US)
  Receive Date: 20200901
  Receipt Date: 20200901
  Transmission Date: 20201103
  Serious: No
  Sender: FDA-Public Use
  Company Number: None

PATIENT
  Age: 50 Year
  Sex: Female

DRUGS (1)
  1. CAPECITABINE 500 MG NOVADOZ PHARMACEUTICALS [Suspect]
     Active Substance: CAPECITABINE
     Indication: BREAST CANCER
     Route: 048
     Dates: start: 20200823, end: 202008

REACTIONS (5)
  - Back pain [None]
  - Headache [None]
  - Nausea [None]
  - Myocardial infarction [None]
  - Arthralgia [None]

NARRATIVE: CASE EVENT DATE: 20200827
